FAERS Safety Report 7543520-3 (Version None)
Quarter: 2011Q2

REPORT INFORMATION
  Report Type: 
  Country: None (occurrence: None)
  Receive Date: 20110613
  Receipt Date: 20011119
  Transmission Date: 20111010
  Serious: Yes (Hospitalization)
  Sender: FDA-Public Use
  Company Number: PHEH2001US09482

PATIENT
  Sex: Male

DRUGS (7)
  1. EXELON [Suspect]
     Indication: DEMENTIA ALZHEIMER'S TYPE
     Dosage: 4.5 MG, BID
     Dates: start: 20010516
  2. ISOSORBIDE [Concomitant]
  3. PLAVIX [Concomitant]
  4. COREG [Concomitant]
  5. LOPRESSOR [Concomitant]
  6. LANOXIN [Concomitant]
  7. MONOPRIL [Concomitant]

REACTIONS (2)
  - CARDIAC FAILURE CONGESTIVE [None]
  - PULMONARY OEDEMA [None]
